FAERS Safety Report 8402111 (Version 2)
Quarter: 2013Q4

REPORT INFORMATION
  Report Type: Spontaneous
  Country: CA (occurrence: CA)
  Receive Date: 20120213
  Receipt Date: 20131009
  Transmission Date: 20140711
  Serious: Yes (Hospitalization, Other)
  Sender: FDA-Public Use
  Company Number: CA-JNJFOC-20120201841

PATIENT
  Age: 42 Year
  Sex: Female
  Weight: 48 kg

DRUGS (2)
  1. REMICADE [Suspect]
     Indication: CROHN^S DISEASE
     Dosage: 5 MG/KG
     Route: 042
     Dates: start: 20090715
  2. IMURAN [Concomitant]
     Indication: CROHN^S DISEASE
     Dosage: HALF TABLET DAILY
     Route: 065
     Dates: start: 1999

REACTIONS (2)
  - Intestinal resection [Recovering/Resolving]
  - Fistula [Recovering/Resolving]
